FAERS Safety Report 11294692 (Version 1)
Quarter: 2015Q3

REPORT INFORMATION
  Report Type: Report from Study
  Country: GB (occurrence: GB)
  Receive Date: 20150723
  Receipt Date: 20150723
  Transmission Date: 20151125
  Serious: Yes (Other)
  Sender: FDA-Public Use
  Company Number: GB-AMGEN-GBRNI2015031098

PATIENT
  Age: 9 Year
  Sex: Female
  Weight: 24 kg

DRUGS (3)
  1. ETANERCEPT [Suspect]
     Active Substance: ETANERCEPT
     Dosage: UNK
     Route: 065
  2. ETANERCEPT [Suspect]
     Active Substance: ETANERCEPT
     Indication: JUVENILE IDIOPATHIC ARTHRITIS
     Dosage: 9.6 MG, 2X/WEEK
     Route: 065
     Dates: start: 20041123
  3. METHOTREXATE [Concomitant]
     Active Substance: METHOTREXATE
     Dosage: UNK
     Dates: start: 20041123

REACTIONS (2)
  - Condition aggravated [Unknown]
  - Uveitis [Unknown]

NARRATIVE: CASE EVENT DATE: 20050628
